FAERS Safety Report 8108308-3 (Version None)
Quarter: 2012Q1

REPORT INFORMATION
  Report Type: 
  Country: None (occurrence: None)
  Receive Date: 20120202
  Receipt Date: 20120123
  Transmission Date: 20120608
  Serious: Yes (Other)
  Sender: FDA-Public Use
  Company Number: PHFR2012GB000837

PATIENT
  Age: 50 Year
  Sex: Female
  Weight: 80 kg

DRUGS (3)
  1. SANDOSTATIN [Suspect]
     Dosage: 100 UG,
     Route: 042
     Dates: start: 20120116
  2. NOREPINEPHRINE BITARTRATE [Concomitant]
  3. METFORMIN HCL [Concomitant]

REACTIONS (3)
  - RESPIRATORY ARREST [None]
  - BLOOD PRESSURE SYSTOLIC INCREASED [None]
  - HYPERTENSION [None]
